FAERS Safety Report 7206929-3 (Version None)
Quarter: 2011Q1

REPORT INFORMATION
  Report Type: 
  Country: None (occurrence: None)
  Receive Date: 20110103
  Receipt Date: 20101222
  Transmission Date: 20110831
  Serious: Yes (Other)
  Sender: FDA-Public Use
  Company Number: A0881200A

PATIENT
  Sex: Female

DRUGS (2)
  1. AVANDIA [Suspect]
     Route: 065
  2. ACTOS [Suspect]
     Route: 065

REACTIONS (4)
  - ABDOMINAL DISTENSION [None]
  - CARDIAC FAILURE [None]
  - WEIGHT INCREASED [None]
  - DYSPNOEA [None]
